FAERS Safety Report 20711793 (Version 1)
Quarter: 2022Q2

REPORT INFORMATION
  Report Type: Spontaneous
  Country: GB (occurrence: GB)
  Receive Date: 20220414
  Receipt Date: 20220414
  Transmission Date: 20220720
  Serious: Yes (Death, Other)
  Sender: FDA-Public Use
  Company Number: GB-PURDUE-USA-2022-0293137

PATIENT

DRUGS (3)
  1. LIDOCAINE [Suspect]
     Active Substance: LIDOCAINE
     Indication: Pain
     Dosage: 4 ML, UNKNOWN
     Route: 042
  2. LIDOCAINE [Suspect]
     Active Substance: LIDOCAINE
     Dosage: 5 ML, UNKNOWN
     Route: 042
  3. TRIAMCINOLONE ACETONIDE [Concomitant]
     Active Substance: TRIAMCINOLONE ACETONIDE
     Indication: Pain
     Dosage: 40 MG, UNKNOWN
     Route: 042

REACTIONS (1)
  - Subacute endocarditis [Fatal]
